FAERS Safety Report 4508929-0 (Version None)
Quarter: 2004Q4

REPORT INFORMATION
  Report Type: 
  Country: None (occurrence: None)
  Receive Date: 20041122
  Receipt Date: 20041122
  Transmission Date: 20050328
  Serious: Yes (Life-Threatening, Hospitalization)
  Sender: FDA-Public Use
  Company Number: None

PATIENT
  Sex: Female
  Weight: 47.6277 kg

DRUGS (2)
  1. BEXTRA [Suspect]
     Indication: ANALGESIC EFFECT
     Dates: start: 20030810, end: 20040930
  2. BEXTRA [Suspect]
     Indication: ARTHRITIS
     Dates: start: 20030810, end: 20040930

REACTIONS (3)
  - FACIAL BONES FRACTURE [None]
  - LOSS OF CONSCIOUSNESS [None]
  - SUPRAVENTRICULAR TACHYCARDIA [None]
